FAERS Safety Report 8593119-5 (Version None)
Quarter: 2012Q3

REPORT INFORMATION
  Report Type: 
  Country: None (occurrence: None)
  Receive Date: 20120814
  Receipt Date: 20120802
  Transmission Date: 20120928
  Serious: Yes (Hospitalization)
  Sender: FDA-Public Use
  Company Number: FR-009507513-1208FRA000599

PATIENT

DRUGS (6)
  1. METEOSPASMYL (ALVERINE CITRATE (+) SIMETHICONE) [Concomitant]
     Dosage: 1 DF, BID
     Route: 048
  2. VITAMIN D [Concomitant]
     Dosage: 1 DF, UNK
     Route: 048
  3. ACETAMINOPHEN [Suspect]
     Dosage: 1 G, BID
     Route: 048
     Dates: start: 20120201, end: 20120719
  4. DESLORATADINE [Suspect]
     Dosage: 1 DF, QD
     Route: 048
     Dates: start: 20111201, end: 20120720
  5. SARGENOR [Concomitant]
     Dosage: 1 DF, BID
     Route: 048
  6. CANDESARTAN CILEXETIL AND HYDROCHLOROTHIAZIDE [Suspect]
     Dosage: 8 MG, QD
     Route: 048
     Dates: start: 20120521, end: 20120719

REACTIONS (2)
  - JAUNDICE [None]
  - CHOLESTASIS [None]
